FAERS Safety Report 5350395-X (Version None)
Quarter: 2007Q2

REPORT INFORMATION
  Report Type: 
  Country: None (occurrence: None)
  Receive Date: 20070606
  Receipt Date: 20070606
  Transmission Date: 20071010
  Serious: Yes (Life-Threatening, Hospitalization)
  Sender: FDA-Public Use
  Company Number: None

PATIENT
  Age: 75 Year
  Sex: Male
  Weight: 65 kg

DRUGS (6)
  1. VANCOMYCIN [Suspect]
     Indication: PROPHYLAXIS
     Dosage: 1 GRAM EVERY 12 HOUR IV
     Route: 042
     Dates: start: 20070518
  2. PEPCID [Concomitant]
  3. COLACE [Concomitant]
  4. NEXIUM [Concomitant]
  5. MORPHINE [Concomitant]
  6. ACETAMINOPHEN [Concomitant]

REACTIONS (4)
  - CHILLS [None]
  - DYSPNOEA [None]
  - RASH [None]
  - TREMOR [None]
